FAERS Safety Report 11051925 (Version 1)
Quarter: 2015Q2

REPORT INFORMATION
  Report Type: Report from Study
  Country: CA (occurrence: CA)
  Receive Date: 20150421
  Receipt Date: 20150421
  Transmission Date: 20150821
  Serious: Yes (Other)
  Sender: FDA-Public Use
  Company Number: CA-UCBSA-2015012650

PATIENT
  Age: 15 Year
  Sex: Female

DRUGS (1)
  1. CERTOLIZUMAB PEGOL RA [Suspect]
     Active Substance: CERTOLIZUMAB PEGOL
     Indication: RHEUMATOID ARTHRITIS
     Dosage: 400 MG, EV 2 WEEKS(QOW); X3
     Route: 058
     Dates: start: 20150402, end: 20150402

REACTIONS (3)
  - Ear infection [Unknown]
  - Sinusitis [Unknown]
  - Laryngitis [Unknown]

NARRATIVE: CASE EVENT DATE: 20150403
